FAERS Safety Report 21574027 (Version 1)
Quarter: 2022Q4

REPORT INFORMATION
  Report Type: Spontaneous
  Country: US (occurrence: US)
  Receive Date: 20221109
  Receipt Date: 20221109
  Transmission Date: 20230113
  Serious: No
  Sender: FDA-Public Use
  Company Number: US-NEURELIS, INC.-2022NEU000099

PATIENT
  Age: 11 Year
  Sex: Male

DRUGS (1)
  1. VALTOCO [Suspect]
     Active Substance: DIAZEPAM
     Indication: Petit mal epilepsy
     Dosage: 10 MILLIGRAM
     Route: 045

REACTIONS (1)
  - Therapeutic product effect delayed [Unknown]
